FAERS Safety Report 5707305-2 (Version None)
Quarter: 2008Q2

REPORT INFORMATION
  Report Type: 
  Country: None (occurrence: None)
  Receive Date: 20080416
  Receipt Date: 20080326
  Transmission Date: 20081010
  Serious: Yes (Other)
  Sender: FDA-Public Use
  Company Number: GB-JNJFOC-20080306432

PATIENT
  Age: 57 Year
  Sex: Female

DRUGS (2)
  1. NIZORAL [Suspect]
     Indication: RASH
     Route: 048
  2. NIZORAL [Suspect]
     Route: 048

REACTIONS (1)
  - PUSTULAR PSORIASIS [None]
